FAERS Safety Report 12423123 (Version 1)
Quarter: 2016Q2

REPORT INFORMATION
  Report Type: Report from Study
  Country: US (occurrence: US)
  Receive Date: 20160601
  Receipt Date: 20160601
  Transmission Date: 20160815
  Serious: Yes (Hospitalization)
  Sender: FDA-Public Use
  Company Number: US-EMD SERONO-8087398

PATIENT
  Sex: Female

DRUGS (1)
  1. REBIF [Suspect]
     Active Substance: INTERFERON BETA-1A
     Indication: MULTIPLE SCLEROSIS
     Route: 058
     Dates: start: 200804

REACTIONS (7)
  - Influenza like illness [Not Recovered/Not Resolved]
  - Injection site bruising [Recovering/Resolving]
  - Tinnitus [Unknown]
  - Depressed mood [Not Recovered/Not Resolved]
  - Blood pressure increased [Unknown]
  - Increased tendency to bruise [Not Recovered/Not Resolved]
  - Headache [Unknown]

NARRATIVE: CASE EVENT DATE: 2015
